FAERS Safety Report 4426781-9 (Version None)
Quarter: 2004Q3

REPORT INFORMATION
  Report Type: 
  Country: None (occurrence: None)
  Receive Date: 20040816
  Receipt Date: 20040714
  Transmission Date: 20050211
  Serious: Yes (Disabling, Other)
  Sender: FDA-Public Use
  Company Number: PHEH2004US07681

PATIENT
  Age: 72 Year
  Sex: Male
  Weight: 70 kg

DRUGS (9)
  1. ZOMETA [Suspect]
     Indication: MULTIPLE MYELOMA
     Dosage: 4 MG MONTHLY
     Route: 042
     Dates: start: 20030324
  2. AREDIA [Suspect]
     Indication: BONE LESION
     Dosage: ONE TIME ONLY DOSE
     Route: 042
     Dates: start: 20040106, end: 20040106
  3. THALIDOMIDE [Concomitant]
     Indication: MULTIPLE MYELOMA
     Dosage: 50 MG, QD
     Dates: start: 20030225
  4. WARFARIN SODIUM [Concomitant]
  5. DECADRON [Concomitant]
     Indication: MULTIPLE MYELOMA
     Dosage: 40 MG, UNK
     Dates: start: 20030220
  6. CALCIUM [Concomitant]
  7. ASPIRIN [Concomitant]
  8. IMMUNE GLOBULIN INTRAVENOUS (HUMAN) [Concomitant]
     Route: 042
     Dates: start: 20040405
  9. THYROID HORMONES [Concomitant]
     Indication: HYPOTHYROIDISM

REACTIONS (3)
  - OSTEONECROSIS [None]
  - PNEUMONIA [None]
  - THERAPEUTIC PROCEDURE [None]
